FAERS Safety Report 5755506-X (Version None)
Quarter: 2008Q2

REPORT INFORMATION
  Report Type: 
  Country: None (occurrence: None)
  Receive Date: 20080602
  Receipt Date: 20080509
  Transmission Date: 20081010
  Serious: Yes (Other)
  Sender: FDA-Public Use
  Company Number: AU-PURDUE-GBR_2008_0004010

PATIENT
  Age: 34 Year
  Sex: Male

DRUGS (2)
  1. OXYCODONE HCL EXTENDED-RELEASE [Suspect]
     Indication: PAIN
     Dosage: 60 MG, DAILY
     Route: 065
  2. OXYCODONE HYDROCHLORIDE [Suspect]
     Indication: ANALGESIA

REACTIONS (3)
  - HEPATOTOXICITY [None]
  - JAUNDICE CHOLESTATIC [None]
  - PRURITUS [None]
